FAERS Safety Report 6868882-1 (Version None)
Quarter: 2010Q3

REPORT INFORMATION
  Report Type: 
  Country: None (occurrence: None)
  Receive Date: 20100722
  Receipt Date: 20080716
  Transmission Date: 20110219
  Serious: Yes (Other)
  Sender: FDA-Public Use
  Company Number: US-PFIZER INC-2008051053

PATIENT
  Sex: Female

DRUGS (7)
  1. CHANTIX [Suspect]
     Indication: SMOKING CESSATION THERAPY
     Dates: start: 20080601, end: 20080605
  2. TOPROL-XL [Concomitant]
  3. CLONIDINE [Concomitant]
  4. SYNTHROID [Concomitant]
  5. NIFEDIPINE [Concomitant]
     Indication: HYPERTENSION
  6. NITROGLYCERIN [Concomitant]
     Indication: CHEST PAIN
  7. TRAZODONE [Concomitant]

REACTIONS (3)
  - DIARRHOEA [None]
  - HALLUCINATION [None]
  - NAUSEA [None]
